FAERS Safety Report 5534734-2 (Version None)
Quarter: 2007Q4

REPORT INFORMATION
  Report Type: 
  Country: None (occurrence: None)
  Receive Date: 20071205
  Receipt Date: 20071121
  Transmission Date: 20080405
  Serious: Yes (Hospitalization)
  Sender: FDA-Public Use
  Company Number: JP-GENENTECH-250942

PATIENT
  Sex: Male

DRUGS (7)
  1. BEVACIZUMAB [Suspect]
     Indication: COLON CANCER
     Dosage: 5 MG/KG, Q2W
     Route: 042
     Dates: start: 20070706
  2. IRINOTECAN HCL [Concomitant]
     Indication: COLON CANCER
     Dates: start: 20070706
  3. FLUOROURACIL [Concomitant]
     Indication: COLON CANCER
     Dates: start: 20070706
  4. ISOVORIN [Concomitant]
     Indication: COLON CANCER
     Dates: start: 20070706
  5. ETODOLAC [Concomitant]
     Indication: COLON CANCER
  6. BLOPRESS [Concomitant]
     Indication: DRUG USE FOR UNKNOWN INDICATION
     Dates: start: 20060627
  7. PAXIL [Concomitant]
     Indication: DRUG USE FOR UNKNOWN INDICATION
     Dates: start: 20070612

REACTIONS (2)
  - DIARRHOEA [None]
  - INTESTINAL OBSTRUCTION [None]
